FAERS Safety Report 9295446 (Version 1)
Quarter: 2013Q1

REPORT INFORMATION
  Report Type: Spontaneous
  Country: US (occurrence: None)
  Receive Date: 20121227
  Receipt Date: 20121227
  Transmission Date: 20140127
  Serious: No
  Sender: FDA-Public Use
  Company Number: PHEH2012US018495

PATIENT
  Age: 11 Year
  Sex: Female

DRUGS (4)
  1. AFINITOR [Suspect]
     Indication: TUBEROUS SCLEROSIS
     Route: 048
     Dates: start: 20120618, end: 20121018
  2. SABRIL (VIGABATRIN) [Concomitant]
  3. LAMICTAL (LAMOTRIGINE) [Concomitant]
  4. VITAMAN (ASCORBIC ACID, CALCIU PANTOTHENATE, CALCIUM PHOSPHATE, ERGOCALCIFEROL, FERROUS FUMARATE) [Concomitant]

REACTIONS (5)
  - Rash erythematous [None]
  - Weight decreased [None]
  - Cough [None]
  - Vomiting [None]
  - Diarrhoea [None]
